FAERS Safety Report 14115962 (Version 1)
Quarter: 2017Q4

REPORT INFORMATION
  Report Type: Spontaneous
  Country: US (occurrence: US)
  Receive Date: 20171023
  Receipt Date: 20171023
  Transmission Date: 20180321
  Serious: No
  Sender: FDA-Public Use
  Company Number: US-ALLERGAN-1749014US

PATIENT
  Age: 52 Year
  Sex: Female
  Weight: 79.37 kg

DRUGS (1)
  1. LINZESS [Suspect]
     Active Substance: LINACLOTIDE
     Indication: CONSTIPATION
     Dosage: 145 ?G, UNK
     Route: 048
     Dates: start: 20170825

REACTIONS (3)
  - Abdominal pain upper [Not Recovered/Not Resolved]
  - Vomiting [Recovered/Resolved]
  - Abdominal discomfort [Not Recovered/Not Resolved]

NARRATIVE: CASE EVENT DATE: 20170827
